FAERS Safety Report 6456632-2 (Version None)
Quarter: 2009Q4

REPORT INFORMATION
  Report Type: 
  Country: None (occurrence: None)
  Receive Date: 20091119
  Receipt Date: 20091104
  Transmission Date: 20100525
  Serious: Yes (Other)
  Sender: FDA-Public Use
  Company Number: 091118-0001185

PATIENT
  Age: 17 Year
  Sex: Male

DRUGS (4)
  1. ELSPAR [Suspect]
     Indication: ACUTE LYMPHOCYTIC LEUKAEMIA
     Dosage: IV ; IV
     Route: 042
  2. PREDNISONE TAB [Suspect]
     Indication: ACUTE LYMPHOCYTIC LEUKAEMIA
  3. DAUNORUBICIN HCL [Suspect]
     Indication: ACUTE LYMPHOCYTIC LEUKAEMIA
  4. VINCRISTINE [Suspect]
     Indication: ACUTE LYMPHOCYTIC LEUKAEMIA

REACTIONS (9)
  - ANTITHROMBIN III DECREASED [None]
  - CEREBRAL HAEMORRHAGE [None]
  - CONVULSION [None]
  - HAEMOGLOBIN DECREASED [None]
  - ISCHAEMIC STROKE [None]
  - PLATELET COUNT DECREASED [None]
  - PROTEIN C INCREASED [None]
  - RED BLOOD CELL COUNT DECREASED [None]
  - WHITE BLOOD CELL COUNT DECREASED [None]
